FAERS Safety Report 4472980-X (Version None)
Quarter: 2004Q4

REPORT INFORMATION
  Report Type: 
  Country: None (occurrence: None)
  Receive Date: 20041008
  Receipt Date: 20041008
  Transmission Date: 20050328
  Serious: Yes (Life-Threatening, Hospitalization)
  Sender: FDA-Public Use
  Company Number: None

PATIENT
  Age: 77 Year
  Sex: Male
  Weight: 102.6944 kg

DRUGS (3)
  1. CAPECITABINE [Suspect]
     Indication: RECTAL CANCER
     Dosage: DAY 1 - 42 665 MG/SQ PO BID
     Route: 048
     Dates: start: 20040805, end: 20040913
  2. RADIATION THERAPY [Suspect]
     Indication: RECTAL CANCER
     Dosage: EXTERNAL BEAM 50,4GY D1 TO D38
     Dates: start: 20040805, end: 20040903
  3. DIPHENO OXGLATE [Concomitant]

REACTIONS (29)
  - ACIDOSIS [None]
  - ANAEMIA [None]
  - ANOREXIA [None]
  - ARRHYTHMIA [None]
  - ASTHENIA [None]
  - BLOOD GLUCOSE INCREASED [None]
  - CHEST X-RAY ABNORMAL [None]
  - COAGULOPATHY [None]
  - COLITIS [None]
  - COMA [None]
  - DEHYDRATION [None]
  - FATIGUE [None]
  - GENERAL PHYSICAL HEALTH DETERIORATION [None]
  - GLUCOSE URINE PRESENT [None]
  - HEART RATE DECREASED [None]
  - HYPOCALCAEMIA [None]
  - HYPOKALAEMIA [None]
  - HYPOTENSION [None]
  - MENTAL STATUS CHANGES [None]
  - MULTI-ORGAN FAILURE [None]
  - OXYGEN SATURATION DECREASED [None]
  - PROTEIN URINE PRESENT [None]
  - RENAL FAILURE [None]
  - RENAL IMPAIRMENT [None]
  - RESPIRATORY DISTRESS [None]
  - RESPIRATORY FAILURE [None]
  - SEPSIS [None]
  - TACHYCARDIA [None]
  - TRACHEAL DEVIATION [None]
